FAERS Safety Report 5808129-8 (Version None)
Quarter: 2008Q3

REPORT INFORMATION
  Report Type: 
  Country: None (occurrence: None)
  Receive Date: 20080711
  Receipt Date: 20080707
  Transmission Date: 20090109
  Serious: Yes (Other)
  Sender: FDA-Public Use
  Company Number: US-PFIZER INC-2008056204

PATIENT
  Sex: Male
  Weight: 43.1 kg

DRUGS (10)
  1. ZOLOFT [Suspect]
     Indication: DEPRESSION
  2. ZYVOX [Interacting]
     Indication: ENTEROCOCCAL INFECTION
  3. ALLOPURINOL [Concomitant]
  4. ACETYLSALICYLIC ACID SRT [Concomitant]
  5. LIPITOR [Concomitant]
  6. PLAVIX [Concomitant]
  7. PROTONIX [Concomitant]
  8. LISINOPRIL [Concomitant]
  9. METRONIDAZOLE HCL [Concomitant]
  10. LANTUS [Concomitant]

REACTIONS (6)
  - CONFUSIONAL STATE [None]
  - DISORIENTATION [None]
  - DIZZINESS [None]
  - DRUG INTERACTION [None]
  - ENTEROCOCCAL INFECTION [None]
  - SOMNOLENCE [None]
